FAERS Safety Report 7487176-7 (Version None)
Quarter: 2011Q2

REPORT INFORMATION
  Report Type: 
  Country: None (occurrence: None)
  Receive Date: 20110510
  Receipt Date: 20110505
  Transmission Date: 20111010
  Serious: Yes (Hospitalization)
  Sender: FDA-Public Use
  Company Number: 1000020730

PATIENT
  Age: 78 Year
  Sex: Female

DRUGS (3)
  1. ACTONEL [Concomitant]
  2. LEVOTHROID [Suspect]
     Indication: HYPOTHYROIDISM
     Dosage: 100 MCG (100 MCG,1 IN 1 D),ORAL
     Route: 048
     Dates: start: 20010101, end: 20080101
  3. SYNTHROID [Suspect]
     Indication: HYPOTHYROIDISM
     Dosage: (1 IN 1 D), ORAL
     Route: 048
     Dates: start: 20110405, end: 20110429

REACTIONS (5)
  - RASH [None]
  - HAEMATOMA [None]
  - ATRIAL FIBRILLATION [None]
  - NECK MASS [None]
  - SWELLING [None]
